FAERS Safety Report 7418422-3 (Version None)
Quarter: 2011Q2

REPORT INFORMATION
  Report Type: 
  Country: None (occurrence: None)
  Receive Date: 20110415
  Receipt Date: 20110407
  Transmission Date: 20111010
  Serious: Yes (Other)
  Sender: FDA-Public Use
  Company Number: PHHY2011US29205

PATIENT
  Age: 32 Year
  Sex: Male

DRUGS (9)
  1. AMIODARONE HCL [Suspect]
     Dosage: 250 MG
     Route: 042
  2. AMIODARONE HCL [Suspect]
     Dosage: 900 MG
     Route: 042
  3. AMIODARONE HCL [Suspect]
     Dosage: 200 MG
  4. SOTALOL HCL [Concomitant]
     Dosage: UNK UKN, UNK
  5. AMIODARONE HCL [Suspect]
     Dosage: 400 MG, TID
     Route: 048
  6. LISINOPRIL [Concomitant]
  7. COUMADIN [Concomitant]
     Dosage: UNK UKN, UNK
  8. FUROSEMIDE [Concomitant]
     Route: 042
  9. DIGOXIN [Concomitant]
     Dosage: UNK UKN, UNK

REACTIONS (3)
  - MUSCLE SPASMS [None]
  - BLOOD CREATINE PHOSPHOKINASE INCREASED [None]
  - TENDERNESS [None]
